FAERS Safety Report 8298979-3 (Version None)
Quarter: 2012Q2

REPORT INFORMATION
  Report Type: 
  Country: None (occurrence: None)
  Receive Date: 20120419
  Receipt Date: 20120416
  Transmission Date: 20120825
  Serious: Yes (Hospitalization)
  Sender: FDA-Public Use
  Company Number: US-MERCK-1103USA00945

PATIENT
  Age: 49 Year
  Sex: Female
  Weight: 105 kg

DRUGS (6)
  1. FOSAMAX [Suspect]
     Indication: OSTEOPOROSIS
     Route: 048
     Dates: start: 20011201, end: 20081101
  2. ALENDRONATE SODIUM [Suspect]
     Indication: OSTEOPENIA
     Route: 048
     Dates: start: 20081201, end: 20090901
  3. FOSAMAX [Suspect]
     Indication: OSTEOPENIA
     Route: 048
     Dates: start: 20011201, end: 20081101
  4. CALCIUM (UNSPECIFIED) [Concomitant]
     Route: 065
     Dates: start: 20000101
  5. FOSAMAX [Suspect]
     Route: 048
     Dates: start: 20001018, end: 20001101
  6. FOSAMAX [Suspect]
     Route: 048
     Dates: start: 20001018, end: 20001101

REACTIONS (29)
  - NASOPHARYNGITIS [None]
  - INFECTION [None]
  - ANKLE FRACTURE [None]
  - WEIGHT DECREASED [None]
  - FUNCTIONAL GASTROINTESTINAL DISORDER [None]
  - RENAL DISORDER [None]
  - HAEMORRHOIDS [None]
  - DEVICE BREAKAGE [None]
  - FIBULA FRACTURE [None]
  - BLOOD POTASSIUM DECREASED [None]
  - IMPAIRED HEALING [None]
  - SYNCOPE [None]
  - COUGH [None]
  - OEDEMA PERIPHERAL [None]
  - PLANTAR FASCIITIS [None]
  - ARTHROPATHY [None]
  - BURSITIS [None]
  - ARTHRITIS [None]
  - OSTEOARTHRITIS [None]
  - ASTHMA [None]
  - BLOOD PRESSURE INADEQUATELY CONTROLLED [None]
  - FEMUR FRACTURE [None]
  - FALL [None]
  - TIBIA FRACTURE [None]
  - FRACTURE NONUNION [None]
  - GASTROOESOPHAGEAL REFLUX DISEASE [None]
  - FOOT DEFORMITY [None]
  - VOMITING [None]
  - NEPHROLITHIASIS [None]
